FAERS Safety Report 8614435-4 (Version None)
Quarter: 2012Q3

REPORT INFORMATION
  Report Type: 
  Country: None (occurrence: None)
  Receive Date: 20120823
  Receipt Date: 20120816
  Transmission Date: 20120928
  Serious: Yes (Other)
  Sender: FDA-Public Use
  Company Number: PHHY2011US49403

PATIENT
  Sex: Male

DRUGS (7)
  1. GLEEVEC [Suspect]
     Indication: SOFT TISSUE NEOPLASM
     Dosage: 400 MG, DAILY
     Route: 048
     Dates: start: 20110601
  2. COUMADIN [Concomitant]
  3. GLEEVEC [Suspect]
     Dosage: 400 MG,DAILY
     Route: 048
     Dates: start: 20110611
  4. INHALATION [Concomitant]
  5. GLEEVEC [Suspect]
     Dosage: 300 MG, DAILY
     Route: 048
  6. GLEEVEC [Suspect]
     Dosage: 200 MG/ 100 MG, DAILY
  7. PREDNISONE TAB [Concomitant]
     Dosage: UNK UKN, UNK

REACTIONS (19)
  - DYSSTASIA [None]
  - EYE SWELLING [None]
  - MUSCLE SPASMS [None]
  - DEAFNESS [None]
  - SWELLING [None]
  - DRY MOUTH [None]
  - MYALGIA [None]
  - MIDDLE EAR EFFUSION [None]
  - TRISMUS [None]
  - MUSCULAR WEAKNESS [None]
  - FLUID RETENTION [None]
  - LOCAL SWELLING [None]
  - NIPPLE PAIN [None]
  - GYNAECOMASTIA [None]
  - FACE OEDEMA [None]
  - ARTHRALGIA [None]
  - MUSCULOSKELETAL DISCOMFORT [None]
  - JOINT SWELLING [None]
  - MUSCULOSKELETAL PAIN [None]
